FAERS Safety Report 7681644-0 (Version None)
Quarter: 2011Q3

REPORT INFORMATION
  Report Type: 
  Country: None (occurrence: None)
  Receive Date: 20110812
  Receipt Date: 20110805
  Transmission Date: 20111222
  Serious: Yes (Other)
  Sender: FDA-Public Use
  Company Number: PHEH2006US11382

PATIENT
  Sex: Female
  Weight: 77.551 kg

DRUGS (15)
  1. CHEMOTHERAPEUTICS NOS [Concomitant]
     Dates: start: 20030101
  2. PREMARIN [Concomitant]
  3. IFEX [Concomitant]
  4. ATIVAN [Concomitant]
  5. RADIATION [Concomitant]
  6. GEMZAR [Concomitant]
  7. CELEBREX [Concomitant]
  8. CIPROFLOXACIN [Concomitant]
  9. DIOVAN [Concomitant]
  10. FEMARA [Concomitant]
  11. ADRIAMYCIN PFS [Concomitant]
  12. MESNA [Concomitant]
  13. ZOMETA [Suspect]
     Indication: LEIOMYOSARCOMA
     Dates: start: 20030101, end: 20060401
  14. TIAZAC [Concomitant]
  15. TAXOTERE [Concomitant]
     Dates: start: 20030101

REACTIONS (41)
  - CHEST WALL MASS [None]
  - ANXIETY [None]
  - INFECTION [None]
  - METASTASES TO BONE [None]
  - BREAST CALCIFICATIONS [None]
  - CONSTIPATION [None]
  - SINUSITIS [None]
  - PLEURAL EFFUSION [None]
  - HYPOPHAGIA [None]
  - ORAL CAVITY FISTULA [None]
  - PULMONARY MASS [None]
  - INGUINAL MASS [None]
  - OCULAR DISCOMFORT [None]
  - NAUSEA [None]
  - GENERAL PHYSICAL HEALTH DETERIORATION [None]
  - DECREASED INTEREST [None]
  - TOOTH INFECTION [None]
  - LOSS OF CONSCIOUSNESS [None]
  - VOMITING [None]
  - EMOTIONAL DISTRESS [None]
  - LIFE EXPECTANCY SHORTENED [None]
  - IMPAIRED HEALING [None]
  - SYNCOPE [None]
  - DYSPNOEA [None]
  - WHEEZING [None]
  - CELLULITIS [None]
  - OSTEONECROSIS OF JAW [None]
  - PAIN [None]
  - METASTASES TO MUSCLE [None]
  - HYPOKALAEMIA [None]
  - JOINT DESTRUCTION [None]
  - VISION BLURRED [None]
  - NEOPLASM MALIGNANT [None]
  - TOOTH ABSCESS [None]
  - LEIOMYOSARCOMA METASTATIC [None]
  - CATARACT [None]
  - BONE DISORDER [None]
  - DEFORMITY [None]
  - BONE EROSION [None]
  - SARCOMA OF SKIN [None]
  - ORBITAL INFECTION [None]
